FAERS Safety Report 24881867 (Version 1)
Quarter: 2025Q1

REPORT INFORMATION
  Report Type: Spontaneous
  Country: GB (occurrence: GB)
  Receive Date: 20250124
  Receipt Date: 20250124
  Transmission Date: 20250408
  Serious: Yes (Other)
  Sender: ROCHE
  Company Number: GB-ROCHE-10000182359

PATIENT
  Sex: Female

DRUGS (1)
  1. VABYSMO [Suspect]
     Active Substance: FARICIMAB-SVOA
     Indication: Product used for unknown indication
     Route: 065

REACTIONS (6)
  - Eye inflammation [Unknown]
  - Retinal pigment epithelial tear [Unknown]
  - Corneal dystrophy [Unknown]
  - Corneal endotheliitis [Unknown]
  - Scleritis [Unknown]
  - Autoimmune disorder [Unknown]
